FAERS Safety Report 7283609-X (Version None)
Quarter: 2011Q1

REPORT INFORMATION
  Report Type: 
  Country: None (occurrence: None)
  Receive Date: 20110209
  Receipt Date: 20110202
  Transmission Date: 20110831
  Serious: Yes (Other)
  Sender: FDA-Public Use
  Company Number: B0692330A

PATIENT
  Sex: Male

DRUGS (3)
  1. LANSOPRAZOLE [Concomitant]
     Dosage: 15MG PER DAY
     Route: 048
  2. TERBINAFINE HCL [Concomitant]
     Dosage: 250MG UNKNOWN
  3. SERETIDE [Suspect]
     Indication: ASTHMA
     Dosage: 2PUFF TWICE PER DAY
     Route: 055
     Dates: start: 20070101

REACTIONS (3)
  - ASTHMA [None]
  - PRODUCT QUALITY ISSUE [None]
  - DRUG INEFFECTIVE [None]
